FAERS Safety Report 4784454-7 (Version None)
Quarter: 2005Q3

REPORT INFORMATION
  Report Type: 
  Country: None (occurrence: None)
  Receive Date: 20050929
  Receipt Date: 20050929
  Transmission Date: 20060218
  Serious: Yes (Other)
  Sender: FDA-Public Use
  Company Number: None

PATIENT
  Sex: Female
  Weight: 49.8957 kg

DRUGS (4)
  1. KETEK [Suspect]
     Indication: BRONCHITIS
     Dosage: TWO ONCE /DAY ORAL
     Route: 048
     Dates: start: 20050909
  2. MIRAPEX [Concomitant]
  3. EFFEXOR [Concomitant]
  4. BUSPAR [Concomitant]

REACTIONS (4)
  - BALANCE DISORDER [None]
  - HEADACHE [None]
  - MYDRIASIS [None]
  - VISION BLURRED [None]
